FAERS Safety Report 7026253-1 (Version None)
Quarter: 2010Q4

REPORT INFORMATION
  Report Type: 
  Country: None (occurrence: None)
  Receive Date: 20101004
  Receipt Date: 20100923
  Transmission Date: 20110411
  Serious: Yes (Other)
  Sender: FDA-Public Use
  Company Number: GR-ELI_LILLY_AND_COMPANY-GR201009006644

PATIENT
  Sex: Male
  Weight: 95.8 kg

DRUGS (4)
  1. PEMETREXED [Suspect]
     Indication: NON-SMALL CELL LUNG CANCER
     Dosage: 1070 MG, UNK
     Dates: start: 20100706
  2. CISPLATIN [Suspect]
     Indication: NON-SMALL CELL LUNG CANCER
     Dosage: 160 MG, UNK
     Dates: start: 20100706
  3. LEXOTANIL [Concomitant]
  4. EFFEXOR XR [Concomitant]

REACTIONS (1)
  - HYPERTENSION [None]
